FAERS Safety Report 7565765-9 (Version None)
Quarter: 2011Q2

REPORT INFORMATION
  Report Type: 
  Country: None (occurrence: None)
  Receive Date: 20110623
  Receipt Date: 20110616
  Transmission Date: 20111010
  Serious: Yes (Other)
  Sender: FDA-Public Use
  Company Number: US-PFIZER INC-2011032285

PATIENT
  Sex: Male

DRUGS (5)
  1. CHANTIX [Suspect]
     Dosage: COUTINUING PACK
     Dates: start: 20070906, end: 20080201
  2. CHANTIX [Suspect]
     Indication: SMOKING CESSATION THERAPY
     Dosage: STARTER PACK
     Dates: start: 20070227, end: 20070601
  3. ALBUTEROL SULFATE AUTOHALER [Concomitant]
     Indication: BRONCHITIS CHRONIC
  4. HYDROCODONE [Concomitant]
     Indication: PAIN
     Dosage: UNK
     Dates: start: 20060101
  5. ALBUTEROL SULFATE AUTOHALER [Concomitant]
     Indication: ASTHMA
     Dosage: UNK
     Dates: start: 20060101

REACTIONS (3)
  - ANXIETY [None]
  - MOOD SWINGS [None]
  - DEPRESSION [None]
